FAERS Safety Report 8131099-7 (Version None)
Quarter: 2012Q1

REPORT INFORMATION
  Report Type: 
  Country: None (occurrence: None)
  Receive Date: 20120213
  Receipt Date: 20120204
  Transmission Date: 20120608
  Serious: Yes (Other)
  Sender: FDA-Public Use
  Company Number: US-AMGEN-USASP2012007621

PATIENT
  Age: 60 Year
  Sex: Male

DRUGS (1)
  1. ENBREL [Suspect]
     Indication: PSORIASIS
     Dosage: 50 MG, QWK
     Dates: start: 20111201

REACTIONS (6)
  - CHEST DISCOMFORT [None]
  - PANIC REACTION [None]
  - OROPHARYNGEAL PAIN [None]
  - ANXIETY [None]
  - DYSPNOEA [None]
  - SINUS DISORDER [None]
